FAERS Safety Report 6633617-4 (Version None)
Quarter: 2010Q1

REPORT INFORMATION
  Report Type: 
  Country: None (occurrence: None)
  Receive Date: 20100312
  Receipt Date: 20100304
  Transmission Date: 20100710
  Serious: Yes (Other)
  Sender: FDA-Public Use
  Company Number: JP-MERCK-1002USA03162

PATIENT
  Age: 59 Year
  Sex: Female

DRUGS (4)
  1. JANUVIA [Suspect]
     Indication: TYPE 2 DIABETES MELLITUS
     Route: 048
     Dates: start: 20091224, end: 20091226
  2. GLYCORAN [Concomitant]
     Route: 065
     Dates: start: 20090101
  3. ACTOS [Concomitant]
     Route: 065
     Dates: start: 20070510
  4. MERCAZOLE [Concomitant]
     Route: 065
     Dates: start: 20021028

REACTIONS (1)
  - HYPOTENSION [None]
